FAERS Safety Report 8177458-8 (Version None)
Quarter: 2012Q1

REPORT INFORMATION
  Report Type: 
  Country: None (occurrence: None)
  Receive Date: 20120301
  Receipt Date: 20120227
  Transmission Date: 20120608
  Serious: Yes (Other)
  Sender: FDA-Public Use
  Company Number: US-PFIZER INC-2012002658

PATIENT
  Sex: Male
  Weight: 77 kg

DRUGS (2)
  1. CHANTIX [Suspect]
     Indication: SMOKING CESSATION THERAPY
     Dosage: 1X PER DAY
     Route: 048
     Dates: start: 20111225, end: 20111201
  2. CHANTIX [Suspect]
     Indication: TOBACCO ABUSE
     Dosage: 0.5 MG, 2X/DAY
     Route: 048
     Dates: start: 20111207, end: 20111228

REACTIONS (10)
  - RECTAL HAEMORRHAGE [None]
  - CONSTIPATION [None]
  - NASOPHARYNGITIS [None]
  - DIARRHOEA [None]
  - HYPERHIDROSIS [None]
  - CHILLS [None]
  - HAEMATOCHEZIA [None]
  - ABDOMINAL PAIN UPPER [None]
  - APHAGIA [None]
  - NAUSEA [None]
